FAERS Safety Report 17564782 (Version 1)
Quarter: 2020Q1

REPORT INFORMATION
  Report Type: Spontaneous
  Country: GB (occurrence: GB)
  Receive Date: 20200320
  Receipt Date: 20200320
  Transmission Date: 20200409
  Serious: Yes (Other)
  Sender: FDA-Public Use
  Company Number: GB-NOVOPROD-717811

PATIENT
  Age: 36 Year
  Sex: Male
  Weight: 162 kg

DRUGS (10)
  1. ATORVASTATIN [Concomitant]
     Active Substance: ATORVASTATIN
     Dosage: 1 DF QD
     Route: 065
     Dates: start: 20170822
  2. MIRTAZAPINE. [Concomitant]
     Active Substance: MIRTAZAPINE
     Dosage: 0.5 DF QD AT NIGHT
     Route: 065
     Dates: start: 20160719
  3. LEVOTHYROXINE. [Concomitant]
     Active Substance: LEVOTHYROXINE
     Dosage: 1 DF QD, IN MORNING
     Route: 065
     Dates: start: 20190503
  4. OXYCODONE HYDROCHLORIDE. [Concomitant]
     Active Substance: OXYCODONE HYDROCHLORIDE
     Dosage: 2 DF, UP TO EVERY 6 HOURS
     Route: 065
     Dates: start: 20160204
  5. NEBIDO [Concomitant]
     Active Substance: TESTOSTERONE UNDECANOATE
     Dosage: 1000 MG
     Route: 065
     Dates: start: 20180821
  6. VITAMIN B [Concomitant]
     Active Substance: VITAMIN B
     Dosage: 1 DF QD
     Route: 065
     Dates: start: 20171114
  7. NOVORAPID [Concomitant]
     Active Substance: INSULIN ASPART
     Indication: PRODUCT USED FOR UNKNOWN INDICATION
     Dosage: USE AS DIRECTED
     Route: 065
     Dates: start: 20171114
  8. FLUOXETINE [Concomitant]
     Active Substance: FLUOXETINE HYDROCHLORIDE
     Dosage: 2 DF QD
     Route: 065
     Dates: start: 20190903
  9. LANTUS [Concomitant]
     Active Substance: INSULIN GLARGINE
     Dosage: USE AS DIRECTED
     Route: 065
     Dates: start: 20150820
  10. OZEMPIC [Suspect]
     Active Substance: SEMAGLUTIDE
     Indication: PRODUCT USED FOR UNKNOWN INDICATION
     Dosage: 0.25MG/0.19ML, 1.5ML.  USE AS DIRECTED.
     Route: 065
     Dates: start: 20190916

REACTIONS (2)
  - Gastrooesophageal reflux disease [Recovered/Resolved]
  - Constipation [Recovered/Resolved]

NARRATIVE: CASE EVENT DATE: 20190916
